FAERS Safety Report 6623076-X (Version None)
Quarter: 2010Q1

REPORT INFORMATION
  Report Type: 
  Country: None (occurrence: None)
  Receive Date: 20100310
  Receipt Date: 20091210
  Transmission Date: 20100710
  Serious: No
  Sender: FDA-Public Use
  Company Number: US-BIOGENIDEC-2009BI040499

PATIENT
  Sex: Female

DRUGS (1)
  1. AVONEX [Suspect]
     Indication: ACCIDENTAL EXPOSURE
     Dates: start: 20091210, end: 20091210

REACTIONS (3)
  - ACCIDENTAL EXPOSURE [None]
  - BURNING SENSATION [None]
  - SCRATCH [None]
